FAERS Safety Report 5761583-2 (Version None)
Quarter: 2008Q2

REPORT INFORMATION
  Report Type: 
  Country: None (occurrence: None)
  Receive Date: 20080606
  Receipt Date: 20080527
  Transmission Date: 20081010
  Serious: Yes (Other)
  Sender: FDA-Public Use
  Company Number: SE-PFIZER INC-2008010824

PATIENT
  Age: 63 Year
  Sex: Female

DRUGS (6)
  1. ZOLOFT [Suspect]
     Indication: ANXIETY
  2. LYRICA [Suspect]
     Indication: GENERALISED ANXIETY DISORDER
     Dosage: DAILY DOSE:225MG
  3. ANTIHYPERTENSIVES [Concomitant]
  4. ATACAND [Concomitant]
  5. EMCONCOR [Concomitant]
  6. ASPIRIN [Concomitant]

REACTIONS (9)
  - CARDIAC FAILURE [None]
  - DIZZINESS [None]
  - EYE DISCHARGE [None]
  - EYELID OEDEMA [None]
  - FATIGUE [None]
  - PALPITATIONS [None]
  - PANIC ATTACK [None]
  - TREMOR [None]
  - WEIGHT INCREASED [None]
